FAERS Safety Report 20709749 (Version 6)
Quarter: 2022Q3

REPORT INFORMATION
  Report Type: Report from Study
  Country: US (occurrence: US)
  Receive Date: 20220414
  Receipt Date: 20220722
  Transmission Date: 20221026
  Serious: Yes (Other)
  Sender: FDA-Public Use
  Company Number: US-ALXN-A202204545

PATIENT
  Age: 12 Year
  Sex: Female

DRUGS (1)
  1. STRENSIQ [Suspect]
     Active Substance: ASFOTASE ALFA
     Indication: Hypophosphatasia
     Dosage: 0.75 MG, TIW
     Route: 058
     Dates: start: 20220411

REACTIONS (22)
  - Choking [Unknown]
  - Presyncope [Unknown]
  - Dizziness [Recovered/Resolved]
  - Vomiting [Recovered/Resolved]
  - Anxiety [Unknown]
  - Cold sweat [Recovered/Resolved]
  - Respiratory rate increased [Recovered/Resolved]
  - Hyperhidrosis [Unknown]
  - Panic attack [Recovered/Resolved]
  - Fatigue [Unknown]
  - Pharyngitis [Unknown]
  - Back pain [Unknown]
  - Pain in extremity [Unknown]
  - Injection site erythema [Recovering/Resolving]
  - Injection site pain [Unknown]
  - Injection site mass [Recovering/Resolving]
  - Injection site induration [Recovering/Resolving]
  - Injection site reaction [Unknown]
  - Injection site pruritus [Unknown]
  - Injection site swelling [Unknown]
  - COVID-19 [Unknown]
  - SARS-CoV-2 test positive [Unknown]

NARRATIVE: CASE EVENT DATE: 20220411
